FAERS Safety Report 6131620-4 (Version None)
Quarter: 2009Q1

REPORT INFORMATION
  Report Type: 
  Country: None (occurrence: None)
  Receive Date: 20090325
  Receipt Date: 20081202
  Transmission Date: 20090719
  Serious: No
  Sender: FDA-Public Use
  Company Number: US-BRISTOL-MYERS SQUIBB COMPANY-14429773

PATIENT
  Sex: Female

DRUGS (3)
  1. ERBITUX [Suspect]
  2. IRINOTECAN HCL [Suspect]
  3. BENADRYL [Concomitant]
     Indication: PREMEDICATION

REACTIONS (4)
  - ANXIETY [None]
  - ERYTHEMA [None]
  - PRURITUS [None]
  - SKIN IRRITATION [None]
